FAERS Safety Report 8427301-4 (Version None)
Quarter: 2012Q2

REPORT INFORMATION
  Report Type: 
  Country: None (occurrence: None)
  Receive Date: 20120611
  Receipt Date: 20120607
  Transmission Date: 20120825
  Serious: Yes (Life-Threatening)
  Sender: FDA-Public Use
  Company Number: US-GILEAD-2012-0056251

PATIENT

DRUGS (1)
  1. VIREAD [Suspect]
     Indication: HEPATITIS B

REACTIONS (1)
  - HEPATIC NEOPLASM MALIGNANT [None]
